FAERS Safety Report 14714560 (Version 2)
Quarter: 2018Q2

REPORT INFORMATION
  Report Type: Spontaneous
  Country: DE (occurrence: DE)
  Receive Date: 20180404
  Receipt Date: 20180625
  Transmission Date: 20180711
  Serious: Yes (Other)
  Sender: FDA-Public Use
  Company Number: DE-MYLANLABS-2018M1020357

PATIENT
  Age: 65 Year
  Sex: Female

DRUGS (16)
  1. LORAZEPAM. [Suspect]
     Active Substance: LORAZEPAM
     Indication: EPILEPSY
     Dosage: 1 MG, QD, PRN
     Route: 048
  2. TEMOZOLOMIDE. [Suspect]
     Active Substance: TEMOZOLOMIDE
     Indication: GLIOBLASTOMA MULTIFORME
     Dosage: 150 MG/M2, QD FOR THE FIRST TWO CYCLES
  3. ONDANSETRON [Suspect]
     Active Substance: ONDANSETRON
     Indication: PROPHYLAXIS OF NAUSEA AND VOMITING
     Dosage: 8 MG, QD
     Route: 065
  4. VALPROIC ACID. [Interacting]
     Active Substance: VALPROIC ACID
     Dosage: UNK
  5. ARTESUNATE [Interacting]
     Active Substance: ARTESUNATE
     Indication: MALARIA
     Dosage: 200 MG, QD
     Route: 048
     Dates: start: 20150920, end: 20151020
  6. HERBAL EXTRACT NOS [Suspect]
     Active Substance: HERBALS
     Indication: PRODUCT USED FOR UNKNOWN INDICATION
     Dosage: 20 DF, UNK, DECOCTION CHINESE HERBS:SIGESBECKIA ORIENTALIS,ARTEMISIA SCOPARIA,DICTAMNUS DASYCARPUS,C
     Dates: start: 20150920
  7. CLOBAZAM [Suspect]
     Active Substance: CLOBAZAM
     Indication: PARTIAL SEIZURES
     Dosage: 5 MG, QD, PRN
     Route: 048
  8. ARTESUNATE [Interacting]
     Active Substance: ARTESUNATE
     Indication: MALARIA PROPHYLAXIS
  9. ARTESUNATE [Interacting]
     Active Substance: ARTESUNATE
     Indication: GLIOBLASTOMA MULTIFORME
  10. VALPROIC ACID. [Suspect]
     Active Substance: VALPROIC ACID
     Indication: GLIOBLASTOMA MULTIFORME
     Dosage: UNK
     Route: 065
  11. TEMOZOLOMIDE. [Suspect]
     Active Substance: TEMOZOLOMIDE
     Dosage: 50 MG/M2, QD
     Route: 048
  12. LORAZEPAM. [Suspect]
     Active Substance: LORAZEPAM
     Indication: PARTIAL SEIZURES
  13. CLOBAZAM [Suspect]
     Active Substance: CLOBAZAM
     Indication: EPILEPSY
     Dosage: UNK
     Route: 065
  14. LEVETIRACETAM. [Interacting]
     Active Substance: LEVETIRACETAM
     Indication: EPILEPSY
     Dosage: 1000 MG, QD
     Route: 065
  15. TEMOZOLOMIDE. [Suspect]
     Active Substance: TEMOZOLOMIDE
     Dosage: 200 MG/M2, QD CYCLE FOR SUBSEQUENT CYCLES
  16. LEVETIRACETAM. [Interacting]
     Active Substance: LEVETIRACETAM
     Indication: PARTIAL SEIZURES
     Dosage: 2750 MG, QD
     Route: 065

REACTIONS (22)
  - Chest pain [Recovering/Resolving]
  - Glioblastoma multiforme [Recovered/Resolved]
  - Gamma-glutamyltransferase increased [Recovered/Resolved]
  - Condition aggravated [Recovered/Resolved]
  - Alanine aminotransferase increased [Recovered/Resolved]
  - Fatigue [Recovered/Resolved]
  - Depressed mood [Recovered/Resolved]
  - Asthenia [Recovered/Resolved]
  - Weight decreased [Recovered/Resolved]
  - White blood cell count decreased [Recovered/Resolved]
  - Aspartate aminotransferase increased [Recovered/Resolved]
  - Off label use [Unknown]
  - Drug-induced liver injury [Recovered/Resolved]
  - Blood lactate dehydrogenase increased [Recovered/Resolved]
  - Monocyte count decreased [Recovered/Resolved]
  - Leukopenia [Unknown]
  - Hepatic enzyme increased [Recovered/Resolved]
  - Drug interaction [Recovered/Resolved]
  - Dyspepsia [Recovered/Resolved]
  - Intentional product misuse [Unknown]
  - Hepatotoxicity [Recovered/Resolved]
  - Nausea [Recovered/Resolved]

NARRATIVE: CASE EVENT DATE: 20150101
